FAERS Safety Report 23213735 (Version 1)
Quarter: 2023Q4

REPORT INFORMATION
  Report Type: Report from Study
  Country: GB (occurrence: GB)
  Receive Date: 20231121
  Receipt Date: 20231121
  Transmission Date: 20240109
  Serious: Yes (Other)
  Sender: FDA-Public Use
  Company Number: GB-002147023-NVSC2023GB245812

PATIENT
  Sex: Female

DRUGS (1)
  1. COSENTYX [Suspect]
     Active Substance: SECUKINUMAB
     Indication: Psoriatic arthropathy
     Dosage: 150 MG, QW (WEEKLY FOR WEEK 0,1,2,3 AND 4 FOLLOWED BY ONCE MONTHLY)
     Route: 058
     Dates: start: 20230920

REACTIONS (1)
  - Lower respiratory tract infection [Unknown]
